FAERS Safety Report 5164346-4 (Version None)
Quarter: 2006Q4

REPORT INFORMATION
  Report Type: 
  Country: None (occurrence: None)
  Receive Date: 20061127
  Receipt Date: 20061127
  Transmission Date: 20070319
  Serious: Yes (Other)
  Sender: FDA-Public Use
  Company Number: None

PATIENT
  Age: 30 Year
  Sex: Female
  Weight: 53.5244 kg

DRUGS (1)
  1. ZICAM ZINC GLUCONICUM NASAL GEL LOT B60221 EXP 01/09 [Suspect]
     Indication: NASAL CONGESTION
     Dosage: ONCE Q4 HOURS NASAL
     Route: 045
     Dates: start: 20061109, end: 20061113

REACTIONS (3)
  - ANXIETY [None]
  - DYSGEUSIA [None]
  - HYPOGEUSIA [None]
